FAERS Safety Report 8131926-3 (Version None)
Quarter: 2012Q1

REPORT INFORMATION
  Report Type: 
  Country: None (occurrence: None)
  Receive Date: 20120207
  Receipt Date: 20120127
  Transmission Date: 20120608
  Serious: Yes (Hospitalization, Other)
  Sender: FDA-Public Use
  Company Number: AUR-APL-2012-00769

PATIENT
  Age: 54 Year
  Sex: Female
  Weight: 91.61 kg

DRUGS (7)
  1. KEFLEX [Suspect]
     Indication: PAIN
     Dosage: 1500 MG (500 MG, 3 IN 1 D),
     Dates: end: 20120101
  2. LANTUS [Concomitant]
  3. ENALAPRIL MALEATE [Concomitant]
  4. NOVOLOG [Concomitant]
  5. CHANTIX [Suspect]
     Indication: SMOKING CESSATION THERAPY
     Dosage: 0.5 MG (0.5 MG, 1 IN 1 D), ORAL
     Route: 048
     Dates: start: 20110401
  6. BACTRIM [Suspect]
     Indication: PAIN
     Dosage: 1000 MG (500 MG, 3 IN 1 D)   500 MG (500 MG, 1 IN 1 D)
  7. AMOXICILLIN [Suspect]
     Indication: PAIN
     Dosage: 1000 MG (500 MG, 2 IN 1 D),

REACTIONS (5)
  - ULCER [None]
  - VAGINAL PROLAPSE [None]
  - PAIN [None]
  - NAUSEA [None]
  - DRUG INEFFECTIVE [None]
